FAERS Safety Report 8148517-0 (Version None)
Quarter: 2012Q1

REPORT INFORMATION
  Report Type: 
  Country: None (occurrence: None)
  Receive Date: 20120218
  Receipt Date: 20110614
  Transmission Date: 20120608
  Serious: No
  Sender: FDA-Public Use
  Company Number: US-ALLERGAN-1108066US

PATIENT
  Age: 54 Year
  Sex: Female

DRUGS (6)
  1. ATENOLOL [Concomitant]
     Indication: MIGRAINE
     Dosage: 50 MG, UNK
     Route: 048
  2. BOTOX COSMETIC [Suspect]
     Dosage: UNK
     Route: 030
  3. ESTROGENIC SUBSTANCE [Concomitant]
     Indication: PRODUCT USED FOR UNKNOWN INDICATION
     Dosage: UNK
     Route: 061
  4. PROMETRIUM [Concomitant]
     Indication: PRODUCT USED FOR UNKNOWN INDICATION
     Dosage: 20 MG, QD
     Route: 048
  5. VENLAFAXINE [Concomitant]
     Indication: DEPRESSION
     Dosage: 75 MG, QD
     Route: 048
  6. BOTOX COSMETIC [Suspect]
     Indication: SKIN WRINKLING
     Dosage: UNK
     Route: 030
     Dates: start: 20110527, end: 20110527

REACTIONS (2)
  - EYELID PTOSIS [None]
  - DRUG INEFFECTIVE [None]
